FAERS Safety Report 25143985 (Version 1)
Quarter: 2025Q2

REPORT INFORMATION
  Report Type: Spontaneous
  Country: US (occurrence: US)
  Receive Date: 20250401
  Receipt Date: 20250401
  Transmission Date: 20250717
  Serious: No
  Sender: ABBVIE
  Company Number: US-ABBVIE-6206028

PATIENT
  Age: 65 Year
  Sex: Male

DRUGS (1)
  1. DALVANCE [Suspect]
     Active Substance: DALBAVANCIN HYDROCHLORIDE
     Indication: Wound infection
     Route: 042

REACTIONS (1)
  - Oxygen saturation decreased [Recovered/Resolved]
